FAERS Safety Report 25330801 (Version 1)
Quarter: 2025Q2

REPORT INFORMATION
  Report Type: Spontaneous
  Country: AU (occurrence: AU)
  Receive Date: 20250519
  Receipt Date: 20250519
  Transmission Date: 20250717
  Serious: Yes (Other)
  Sender: ROCHE
  Company Number: AU-ROCHE-10000278601

PATIENT
  Age: 33 Year
  Sex: Female

DRUGS (4)
  1. OCRELIZUMAB [Suspect]
     Active Substance: OCRELIZUMAB
     Indication: Multiple sclerosis
     Route: 065
     Dates: start: 2020, end: 2023
  2. MYCOPHENOLATE MOFETIL [Suspect]
     Active Substance: MYCOPHENOLATE MOFETIL
     Indication: Product used for unknown indication
     Dosage: STRENGTH: 500/250MG
     Route: 065
  3. TOCILIZUMAB [Suspect]
     Active Substance: TOCILIZUMAB
     Indication: Chronic lymphocytic inflammation with pontine perivascular enhancement responsive to steroids
     Route: 065
     Dates: start: 202408
  4. PREDNISOLONE [Suspect]
     Active Substance: PREDNISOLONE
     Indication: Product used for unknown indication
     Route: 065
     Dates: start: 2023

REACTIONS (7)
  - Magnetic resonance imaging abnormal [Unknown]
  - Weight increased [Unknown]
  - Osteoporosis [Unknown]
  - Fracture [Unknown]
  - Multiple sclerosis relapse [Unknown]
  - Off label use [Unknown]
  - Drug ineffective [Unknown]
